FAERS Safety Report 16527003 (Version 1)
Quarter: 2019Q3

REPORT INFORMATION
  Report Type: Spontaneous
  Country: US (occurrence: US)
  Receive Date: 20190703
  Receipt Date: 20190703
  Transmission Date: 20191004
  Serious: No
  Sender: FDA-Public Use
  Company Number: US-GLAXOSMITHKLINE-US2019117412

PATIENT
  Age: 68 Year
  Sex: Female

DRUGS (2)
  1. ABREVA [Suspect]
     Active Substance: DOCOSANOL
     Dosage: UNK
  2. ABREVA [Suspect]
     Active Substance: DOCOSANOL
     Indication: ORAL HERPES
     Dosage: UNK UNK, PRN
     Route: 061
     Dates: start: 201905

REACTIONS (3)
  - Wrong technique in product usage process [Unknown]
  - Drug effect faster than expected [Unknown]
  - Product use issue [Unknown]

NARRATIVE: CASE EVENT DATE: 201905
